FAERS Safety Report 24611191 (Version 4)
Quarter: 2025Q1

REPORT INFORMATION
  Report Type: Report from Study
  Country: JP (occurrence: JP)
  Receive Date: 20241113
  Receipt Date: 20250112
  Transmission Date: 20250409
  Serious: Yes (Hospitalization)
  Sender: ABBVIE
  Company Number: JP-ABBVIE-5999505

PATIENT
  Age: 20 Year
  Sex: Male
  Weight: 51 kg

DRUGS (14)
  1. RISANKIZUMAB [Suspect]
     Active Substance: RISANKIZUMAB
     Indication: Crohn^s disease
     Route: 058
     Dates: start: 20240329
  2. RISANKIZUMAB [Suspect]
     Active Substance: RISANKIZUMAB
     Indication: Crohn^s disease
     Route: 042
     Dates: start: 20240105, end: 20240301
  3. HEPARINOID [Concomitant]
     Indication: Dermatitis atopic
     Route: 062
     Dates: start: 2011
  4. IMURAN [Concomitant]
     Active Substance: AZATHIOPRINE
     Indication: Crohn^s disease
     Route: 048
     Dates: start: 20240105, end: 20241106
  5. LOCOID [Concomitant]
     Active Substance: HYDROCORTISONE BUTYRATE
     Indication: Dermatitis atopic
     Route: 062
     Dates: start: 2011
  6. MIYA-BM [Concomitant]
     Active Substance: CLOSTRIDIUM BUTYRICUM SPORES STRAIN M-55
     Indication: Crohn^s disease
     Route: 048
     Dates: start: 20210717, end: 20241106
  7. NEXIUM [Concomitant]
     Active Substance: ESOMEPRAZOLE MAGNESIUM
     Indication: Gastrooesophageal reflux disease
     Route: 048
     Dates: start: 20240524, end: 20240726
  8. NEXIUM [Concomitant]
     Active Substance: ESOMEPRAZOLE MAGNESIUM
     Indication: Gastrooesophageal reflux disease
     Route: 048
     Dates: start: 20240907, end: 20241106
  9. OLOPATADINE HYDROCHLORIDE [Concomitant]
     Active Substance: OLOPATADINE HYDROCHLORIDE
     Indication: Dermatitis atopic
     Route: 048
     Dates: start: 2011
  10. PREDONINE [Concomitant]
     Active Substance: PREDNISOLONE
     Indication: Dermatitis atopic
     Route: 062
     Dates: start: 2011
  11. PETROLATUM [Concomitant]
     Active Substance: PETROLATUM
     Indication: Dermatitis atopic
     Dosage: DOSE: ADEQUATE DOSE, UNIT: APPLICATION
     Route: 062
     Dates: start: 2011
  12. SPIRAZON [Concomitant]
     Indication: Dermatitis atopic
     Dosage: 0.3%?DOSE: ADEQUATE DOSE, UNIT: APPLICATION
     Route: 062
     Dates: start: 2011
  13. TACROLIMUS [Concomitant]
     Active Substance: TACROLIMUS
     Indication: Dermatitis atopic
     Dosage: DOSE: ADEQUATE DOSE, UNIT: APPLICATION
     Route: 062
     Dates: start: 2011
  14. ZOLMITRIPTAN OD [Concomitant]
     Active Substance: ZOLMITRIPTAN
     Indication: Migraine
     Route: 048
     Dates: start: 2013

REACTIONS (1)
  - Ileus [Not Recovered/Not Resolved]

NARRATIVE: CASE EVENT DATE: 20241107
